FAERS Safety Report 6960720-1 (Version None)
Quarter: 2010Q3

REPORT INFORMATION
  Report Type: 
  Country: None (occurrence: None)
  Receive Date: 20100901
  Receipt Date: 20100825
  Transmission Date: 20110219
  Serious: Yes (Hospitalization)
  Sender: FDA-Public Use
  Company Number: JP-ROCHE-718611

PATIENT
  Sex: Female

DRUGS (16)
  1. DENOSINE IV [Suspect]
     Dosage: FORM: INFUSION
     Route: 041
     Dates: start: 20100713, end: 20100725
  2. PREDONINE [Suspect]
     Indication: WEBER-CHRISTIAN DISEASE
     Route: 048
     Dates: start: 20100701, end: 20100713
  3. PREDONINE [Suspect]
     Route: 048
     Dates: start: 20100714, end: 20100729
  4. PREDONINE [Suspect]
     Route: 048
     Dates: start: 20100730, end: 20100810
  5. PREDONINE [Suspect]
     Route: 048
     Dates: start: 20100811
  6. ATARAX [Suspect]
     Indication: INSOMNIA
     Route: 048
     Dates: start: 20100615, end: 20100805
  7. NEORAL [Suspect]
     Indication: WEBER-CHRISTIAN DISEASE
     Route: 048
     Dates: start: 20100701, end: 20100713
  8. NEORAL [Suspect]
     Route: 048
     Dates: start: 20100704
  9. ALFAROL [Suspect]
     Indication: OSTEOPOROSIS PROPHYLAXIS
     Route: 048
     Dates: start: 20100701
  10. TAKEPRON [Suspect]
     Route: 048
     Dates: start: 20100701
  11. MUCOSTA [Suspect]
     Route: 048
     Dates: start: 20100701
  12. PROCYLIN [Suspect]
     Indication: THROMBOSIS PROPHYLAXIS
     Route: 048
     Dates: start: 20100701
  13. LENDORMIN [Suspect]
     Indication: INSOMNIA
     Route: 048
     Dates: end: 20100726
  14. LOXONIN [Suspect]
     Indication: PAIN
     Dosage: INDICATION: PAIN AND PYREXIA
     Route: 048
  15. BENAMBAX [Suspect]
     Dosage: ROUTE: RESPIRATORY IINHALATION)
     Route: 055
     Dates: start: 20100720
  16. NEO-MINOPHAGEN C [Suspect]
     Route: 041
     Dates: start: 20100611

REACTIONS (1)
  - MENTAL DISORDER [None]
